FAERS Safety Report 4906742-3 (Version None)
Quarter: 2006Q1

REPORT INFORMATION
  Report Type: 
  Country: None (occurrence: None)
  Receive Date: 20060206
  Receipt Date: 20060120
  Transmission Date: 20060701
  Serious: Yes (Death)
  Sender: FDA-Public Use
  Company Number: 221715

PATIENT
  Age: 68 Year
  Sex: Male

DRUGS (7)
  1. AVASTIN (BEVACIZUMAB) PWDR + SOLVENT, INFUSION SOLN, 100MG [Suspect]
     Indication: COLORECTAL CANCER METASTATIC
     Dosage: 500 MG, Q3W, INTRAVENOUS
     Route: 042
     Dates: start: 20050829
  2. CAPECITABINE (CAPECTIABINE) [Suspect]
     Indication: COLORECTAL CANCER METASTATIC
     Dosage: 3600 MG, QD, ORAL
     Route: 048
     Dates: start: 20050829
  3. OXALIPLATIN (OXALIPLATIN) [Suspect]
     Indication: COLORECTAL CANCER METASTATIC
     Dosage: 240 MG, Q3W, INTRAVENOUS
     Route: 042
     Dates: start: 20050829
  4. CETUXIMAB (CETUXIMAB) [Suspect]
     Indication: COLORECTAL CANCER METASTATIC
     Dosage: 250 MG/M2, Q3W, INTRAVENOUS
     Route: 042
     Dates: start: 20050829
  5. BETAMETHASONE [Concomitant]
  6. TRIAMINICOL (CHLORPHENIRAMINE MALEATE, DEXTROMETHORPHAN HYDROBROMIDE, [Concomitant]
  7. ASCAL (CARBASPIRIN CALCIUM) [Concomitant]

REACTIONS (2)
  - CARDIAC FAILURE ACUTE [None]
  - PULMONARY EMBOLISM [None]
